FAERS Safety Report 9175134 (Version 1)
Quarter: 2013Q1

REPORT INFORMATION
  Report Type: Spontaneous
  Country: US (occurrence: US)
  Receive Date: 20130320
  Receipt Date: 20130320
  Transmission Date: 20140127
  Serious: Yes (Other)
  Sender: FDA-Public Use
  Company Number: US-BRISTOL-MYERS SQUIBB COMPANY-17469651

PATIENT
  Age: 79 Year
  Sex: Female
  Weight: 80.72 kg

DRUGS (1)
  1. WARFARIN [Suspect]
     Indication: CARDIAC FAILURE CONGESTIVE

REACTIONS (1)
  - Cardiac valve disease [Unknown]
